FAERS Safety Report 11150009 (Version 2)
Quarter: 2015Q2

REPORT INFORMATION
  Report Type: Spontaneous
  Country: DE (occurrence: DE)
  Receive Date: 20150529
  Receipt Date: 20150602
  Transmission Date: 20150821
  Serious: Yes (Hospitalization, Other)
  Sender: FDA-Public Use
  Company Number: DE-009507513-1505DEU003322

PATIENT
  Age: 64 Year
  Sex: Male

DRUGS (3)
  1. INEGY [Suspect]
     Active Substance: EZETIMIBE\SIMVASTATIN
     Indication: HYPERCHOLESTEROLAEMIA
     Dosage: UNK, QD
     Route: 048
     Dates: start: 200410, end: 201502
  2. CIPRO (CIPROFLOXACIN HYDROCHLORIDE) [Concomitant]
     Indication: NOSOCOMIAL INFECTION
     Dosage: UNK, BID
     Dates: start: 20150128
  3. CIPRO (CIPROFLOXACIN HYDROCHLORIDE) [Concomitant]
     Indication: WOUND INFECTION

REACTIONS (4)
  - Cholestasis [Unknown]
  - Liver injury [Recovering/Resolving]
  - Hepatic enzyme increased [Recovering/Resolving]
  - Hepatitis [Unknown]

NARRATIVE: CASE EVENT DATE: 20150128
